FAERS Safety Report 18970846 (Version 1)
Quarter: 2021Q1

REPORT INFORMATION
  Report Type: Spontaneous
  Country: US (occurrence: US)
  Receive Date: 20210305
  Receipt Date: 20210305
  Transmission Date: 20210420
  Serious: Yes (Other)
  Sender: FDA-Public Use
  Company Number: US-SA-2021SA071500

PATIENT
  Age: 45 Year
  Sex: Female

DRUGS (5)
  1. HYDROXYCHLOROQUINE [Concomitant]
     Active Substance: HYDROXYCHLOROQUINE
  2. SERTRALINE [Concomitant]
     Active Substance: SERTRALINE HYDROCHLORIDE
  3. DUPIXENT [Suspect]
     Active Substance: DUPILUMAB
     Indication: RHEUMATOID ARTHRITIS
  4. ENBREL [Concomitant]
     Active Substance: ETANERCEPT
  5. VITAMIN D NOS [Concomitant]
     Active Substance: VITAMIN D NOS
     Dosage: STRENGTH: 50000 UNT

REACTIONS (3)
  - Product dose omission issue [Unknown]
  - Rheumatoid arthritis [Not Recovered/Not Resolved]
  - Product use in unapproved indication [Unknown]

NARRATIVE: CASE EVENT DATE: 20210225
